FAERS Safety Report 25691803 (Version 1)
Quarter: 2025Q3

REPORT INFORMATION
  Report Type: Spontaneous
  Country: US (occurrence: US)
  Receive Date: 20250818
  Receipt Date: 20250818
  Transmission Date: 20251020
  Serious: No
  Sender: INCYTE
  Company Number: US-EVENT-003863

PATIENT

DRUGS (1)
  1. PEMAZYRE [Suspect]
     Active Substance: PEMIGATINIB
     Route: 065

REACTIONS (1)
  - Dysphagia [Unknown]
